FAERS Safety Report 4545936-6 (Version None)
Quarter: 2005Q1

REPORT INFORMATION
  Report Type: 
  Country: None (occurrence: None)
  Receive Date: 20050103
  Receipt Date: 20041221
  Transmission Date: 20050727
  Serious: Yes (Hospitalization)
  Sender: FDA-Public Use
  Company Number: 2004118196

PATIENT
  Age: 65 Year
  Sex: Male

DRUGS (9)
  1. IRINOTECAN HCL [Suspect]
     Indication: SMALL CELL LUNG CANCER STAGE UNSPECIFIED
     Dosage: SEE IMAGE
     Route: 042
     Dates: start: 20041118
  2. IRINOTECAN HCL [Suspect]
     Indication: SMALL CELL LUNG CANCER STAGE UNSPECIFIED
     Dosage: SEE IMAGE
     Route: 042
     Dates: start: 20041129
  3. IRINOTECAN HCL [Suspect]
     Indication: SMALL CELL LUNG CANCER STAGE UNSPECIFIED
     Dosage: SEE IMAGE
     Route: 042
     Dates: start: 20041208
  4. CARBOPLATIN [Suspect]
     Indication: SMALL CELL LUNG CANCER STAGE UNSPECIFIED
     Dosage: SEE IMAGE
     Route: 042
     Dates: start: 20041118
  5. CARBOPLATIN [Suspect]
     Indication: SMALL CELL LUNG CANCER STAGE UNSPECIFIED
     Dosage: SEE IMAGE
     Route: 042
     Dates: start: 20041208
  6. LORAZEPAM [Concomitant]
  7. PROCHLORPERAZINE EDISYLATE [Concomitant]
  8. ONDANSETRON HCL [Concomitant]
  9. DEXAMETHASONE [Concomitant]

REACTIONS (7)
  - ASPIRATION PLEURAL CAVITY ABNORMAL [None]
  - BRONCHOPLEURAL FISTULA [None]
  - LUNG INFECTION [None]
  - PULMONARY CAVITATION [None]
  - SINUS TACHYCARDIA [None]
  - SUPRAVENTRICULAR EXTRASYSTOLES [None]
  - TUMOUR NECROSIS [None]
